FAERS Safety Report 21039512 (Version 1)
Quarter: 2022Q3

REPORT INFORMATION
  Report Type: Spontaneous
  Country: CH (occurrence: CH)
  Receive Date: 20220704
  Receipt Date: 20220704
  Transmission Date: 20221027
  Serious: Yes (Congenital Anomaly, Other)
  Sender: FDA-Public Use
  Company Number: CH-GILEAD-2022-0588017

PATIENT
  Sex: Female

DRUGS (4)
  1. VIREAD [Suspect]
     Active Substance: TENOFOVIR DISOPROXIL FUMARATE
     Indication: HIV infection
     Dosage: UNK
     Route: 050
  2. LAMIVUDINE [Concomitant]
     Active Substance: LAMIVUDINE
  3. LOPINAVIR\RITONAVIR [Concomitant]
     Active Substance: LOPINAVIR\RITONAVIR
  4. ZIDOVUDINE [Concomitant]
     Active Substance: ZIDOVUDINE

REACTIONS (2)
  - Meningomyelocele [Unknown]
  - Foetal exposure during pregnancy [Recovered/Resolved]
